FAERS Safety Report 4594731-0 (Version None)
Quarter: 2005Q1

REPORT INFORMATION
  Report Type: 
  Country: None (occurrence: None)
  Receive Date: 20050301
  Receipt Date: 20050128
  Transmission Date: 20050727
  Serious: No
  Sender: FDA-Public Use
  Company Number: US-BRISTOL-MYERS SQUIBB COMPANY-12842233

PATIENT
  Sex: Male

DRUGS (4)
  1. ERBITUX [Suspect]
     Indication: COLORECTAL CANCER METASTATIC
     Dosage: LOADING DOSE.
     Route: 042
     Dates: start: 20050121
  2. BENADRYL [Concomitant]
     Indication: PREMEDICATION
     Dates: start: 20050121
  3. TYLENOL (CAPLET) [Concomitant]
     Indication: PREMEDICATION
     Dates: start: 20050121
  4. IRINOTECAN HCL [Concomitant]

REACTIONS (3)
  - CHILLS [None]
  - DISORIENTATION [None]
  - LIP BLISTER [None]
